FAERS Safety Report 5398707-5 (Version None)
Quarter: 2007Q3

REPORT INFORMATION
  Report Type: 
  Country: None (occurrence: None)
  Receive Date: 20070726
  Receipt Date: 20070419
  Transmission Date: 20080115
  Serious: No
  Sender: FDA-Public Use
  Company Number: US-AMGEN-KDL220409

PATIENT
  Sex: Female

DRUGS (9)
  1. EPOGEN [Suspect]
     Indication: DIALYSIS
     Dates: start: 20060503
  2. TOPROL-XL [Concomitant]
  3. NORVASC [Concomitant]
  4. ALLOPURINOL [Concomitant]
  5. LIPITOR [Concomitant]
  6. FOLIC ACID [Concomitant]
  7. UNSPECIFIED MEDICATION [Concomitant]
  8. ZINC [Concomitant]
  9. HEPARIN [Concomitant]

REACTIONS (6)
  - ALOPECIA [None]
  - DEPRESSED MOOD [None]
  - DRY MOUTH [None]
  - DYSGEUSIA [None]
  - NAIL GROWTH ABNORMAL [None]
  - TRICHORRHEXIS [None]
